FAERS Safety Report 11303503 (Version 1)
Quarter: 2015Q3

REPORT INFORMATION
  Report Type: Spontaneous
  Country: US (occurrence: US)
  Receive Date: 20150723
  Receipt Date: 20150723
  Transmission Date: 20151125
  Serious: No
  Sender: FDA-Public Use
  Company Number: US-JNJFOC-20141214943

PATIENT
  Sex: Female
  Weight: 63.5 kg

DRUGS (3)
  1. ZYRTEC-D [Suspect]
     Active Substance: CETIRIZINE HYDROCHLORIDE\PSEUDOEPHEDRINE HYDROCHLORIDE
     Indication: EAR DISCOMFORT
     Dosage: 1 TABLET TWICE WITHIN 30 MINUTES
     Route: 048
     Dates: start: 20141216
  2. ZYRTEC-D [Suspect]
     Active Substance: CETIRIZINE HYDROCHLORIDE\PSEUDOEPHEDRINE HYDROCHLORIDE
     Indication: PRURITUS
     Dosage: 1 TABLET TWICE WITHIN 30 MINUTES
     Route: 048
     Dates: start: 20141216
  3. ZYRTEC-D [Suspect]
     Active Substance: CETIRIZINE HYDROCHLORIDE\PSEUDOEPHEDRINE HYDROCHLORIDE
     Indication: UPPER-AIRWAY COUGH SYNDROME
     Dosage: 1 TABLET TWICE WITHIN 30 MINUTES
     Route: 048
     Dates: start: 20141216

REACTIONS (1)
  - Incorrect dose administered [Unknown]
